FAERS Safety Report 14242288 (Version 1)
Quarter: 2017Q4

REPORT INFORMATION
  Report Type: Spontaneous
  Country: US (occurrence: US)
  Receive Date: 20171130
  Receipt Date: 20171130
  Transmission Date: 20180321
  Serious: Yes (Hospitalization)
  Sender: FDA-Public Use
  Company Number: None

PATIENT
  Age: 31 Year
  Sex: Male
  Weight: 110 kg

DRUGS (9)
  1. HYDROCHLOROTHIAZIDE. [Concomitant]
     Active Substance: HYDROCHLOROTHIAZIDE
  2. LORAZEPAM. [Concomitant]
     Active Substance: LORAZEPAM
  3. RANITIDINE. [Concomitant]
     Active Substance: RANITIDINE
  4. LORATIDINE [Concomitant]
     Active Substance: LORATADINE
  5. LEVOTHYROXINE. [Concomitant]
     Active Substance: LEVOTHYROXINE
  6. TRETINOIN (RETIN-A) [Concomitant]
  7. LITHIUM OROTATE [Suspect]
     Active Substance: LITHIUM OROTATE
     Indication: SCHIZOAFFECTIVE DISORDER
     Route: 048
  8. QUETIAPINE XR [Concomitant]
     Active Substance: QUETIAPINE
  9. BENZTROPINE [Concomitant]
     Active Substance: BENZTROPINE

REACTIONS (3)
  - Paranoia [None]
  - Hallucination, visual [None]
  - Psychogenic seizure [None]

NARRATIVE: CASE EVENT DATE: 20171129
